FAERS Safety Report 18722338 (Version 1)
Quarter: 2021Q1

REPORT INFORMATION
  Report Type: Other
  Country: HR (occurrence: HR)
  Receive Date: 20210111
  Receipt Date: 20210111
  Transmission Date: 20210419
  Serious: Yes (Life-Threatening, Hospitalization)
  Sender: FDA-Public Use
  Company Number: HR-GE HEALTHCARE LIFE SCIENCES-2021CSU000057

PATIENT

DRUGS (2)
  1. CLARISCAN [Suspect]
     Active Substance: GADOTERATE MEGLUMINE
     Indication: MAGNETIC RESONANCE IMAGING SPINAL
     Dosage: 12 ML, SINGLE
     Route: 042
     Dates: start: 20201123, end: 20201123
  2. CLARISCAN [Suspect]
     Active Substance: GADOTERATE MEGLUMINE
     Indication: PRODUCT USED FOR UNKNOWN INDICATION

REACTIONS (5)
  - Anaphylactic reaction [Recovered/Resolved]
  - Loss of consciousness [Recovered/Resolved]
  - Anaphylactic shock [Recovered/Resolved]
  - Respiratory arrest [Recovered/Resolved]
  - Erythema [Recovered/Resolved]

NARRATIVE: CASE EVENT DATE: 20201123
